FAERS Safety Report 5932638-4 (Version None)
Quarter: 2008Q4

REPORT INFORMATION
  Report Type: 
  Country: None (occurrence: None)
  Receive Date: 20081028
  Receipt Date: 20081016
  Transmission Date: 20090506
  Serious: No
  Sender: FDA-Public Use
  Company Number: US-BAYER-200836355NA

PATIENT
  Age: 52 Year
  Sex: Female
  Weight: 39 kg

DRUGS (3)
  1. YAZ [Suspect]
     Indication: PREMENSTRUAL SYNDROME
     Route: 048
     Dates: start: 20081011
  2. LAXATIVES [Concomitant]
  3. PREDNISONE TAB [Concomitant]

REACTIONS (5)
  - CHILLS [None]
  - DRY MOUTH [None]
  - FATIGUE [None]
  - MENTAL IMPAIRMENT [None]
  - NO ADVERSE EVENT [None]
